FAERS Safety Report 25818521 (Version 2)
Quarter: 2025Q4

REPORT INFORMATION
  Report Type: Report from Study
  Country: JP (occurrence: JP)
  Receive Date: 20250918
  Receipt Date: 20251028
  Transmission Date: 20260118
  Serious: Yes (Other)
  Sender: ABBVIE
  Company Number: JP-ABBVIE-5362843

PATIENT
  Age: 69 Year
  Sex: Male

DRUGS (3)
  1. VYALEV [Suspect]
     Active Substance: FOSCARBIDOPA\FOSLEVODOPA
     Indication: Parkinson^s disease
     Dosage: CD: 0.27 ML/HR, CONTINUOUS INFUSION OVER 24 HOURS
     Route: 058
     Dates: start: 20230801
  2. VYALEV [Suspect]
     Active Substance: FOSCARBIDOPA\FOSLEVODOPA
     Dosage: CD: 0.29 ML/HR, CONTINUOUS INFUSION OVER 24 HOURS
     Route: 058
     Dates: end: 20251022
  3. BENSERAZIDE HYDROCHLORIDE\LEVODOPA [Concomitant]
     Active Substance: BENSERAZIDE HYDROCHLORIDE\LEVODOPA
     Indication: Parkinson^s disease
     Route: 048

REACTIONS (50)
  - Appendicitis [Unknown]
  - Infusion site induration [Unknown]
  - On and off phenomenon [Recovered/Resolved]
  - Therapeutic product effect decreased [Unknown]
  - Infusion site erythema [Not Recovered/Not Resolved]
  - Infusion site abscess [Recovered/Resolved]
  - Infusion site discharge [Recovered/Resolved]
  - Pyrexia [Recovered/Resolved]
  - Parkinson^s disease [Recovered/Resolved]
  - Mobility decreased [Recovered/Resolved]
  - Musculoskeletal stiffness [Unknown]
  - Infusion site swelling [Unknown]
  - Malaise [Unknown]
  - Infusion site pain [Unknown]
  - Therapeutic product effect increased [Unknown]
  - Therapeutic product effect incomplete [Unknown]
  - Infusion site erythema [Unknown]
  - Infusion site haemorrhage [Unknown]
  - Malaise [Unknown]
  - On and off phenomenon [Recovered/Resolved]
  - Mobility decreased [Recovered/Resolved]
  - Infusion site discharge [Unknown]
  - Therapeutic product effect decreased [Unknown]
  - Infusion site reaction [Unknown]
  - Infusion site pain [Recovering/Resolving]
  - Infusion site pain [Unknown]
  - Balance disorder [Unknown]
  - Medical device discomfort [Unknown]
  - Infusion site pain [Unknown]
  - Infusion site bruising [Recovered/Resolved]
  - Therapeutic product effect incomplete [Unknown]
  - Stress [Unknown]
  - Infusion site bruising [Recovered/Resolved]
  - Infusion site erythema [Unknown]
  - Infusion site haemorrhage [Recovered/Resolved]
  - Infusion site pain [Unknown]
  - Mobility decreased [Unknown]
  - Infusion site haemorrhage [Unknown]
  - Infusion site pruritus [Unknown]
  - Infusion site mass [Unknown]
  - Infusion site scar [Unknown]
  - Infusion site erythema [Unknown]
  - Parkinson^s disease [Unknown]
  - Infusion site induration [Unknown]
  - Infusion site induration [Unknown]
  - On and off phenomenon [Unknown]
  - Therapeutic product effect incomplete [Unknown]
  - On and off phenomenon [Recovered/Resolved]
  - Parkinson^s disease [Unknown]
  - Therapeutic response shortened [Unknown]

NARRATIVE: CASE EVENT DATE: 20230814
